FAERS Safety Report 8725406 (Version 4)
Quarter: 2013Q4

REPORT INFORMATION
  Report Type: Spontaneous
  Country: US (occurrence: US)
  Receive Date: 20120815
  Receipt Date: 20131114
  Transmission Date: 20140711
  Serious: Yes (Other)
  Sender: FDA-Public Use
  Company Number: US-BRISTOL-MYERS SQUIBB COMPANY-16681207

PATIENT
  Age: 45 Year
  Sex: Male

DRUGS (1)
  1. ORENCIA [Suspect]
     Indication: RHEUMATOID ARTHRITIS
     Dosage: LAST DATE OF INFUSION:04NOV2011 ,24JUL2012,03OCT12, 10OCT12?STOPPED: DEC11 RESTARTED ON MAY2012.
     Route: 042

REACTIONS (11)
  - Cardiac failure congestive [Recovering/Resolving]
  - Osteomyelitis [Recovering/Resolving]
  - Arthropathy [Unknown]
  - VIIth nerve paralysis [Unknown]
  - Herpes zoster [Recovering/Resolving]
  - Bronchitis [Unknown]
  - Respiratory tract infection [Unknown]
  - Cough [Unknown]
  - Pyrexia [Unknown]
  - Conjunctivitis [Unknown]
  - Sinusitis [Unknown]
